FAERS Safety Report 15301758 (Version 1)
Quarter: 2018Q3

REPORT INFORMATION
  Report Type: Spontaneous
  Country: US (occurrence: US)
  Receive Date: 20180809
  Receipt Date: 20180809
  Transmission Date: 20181010
  Serious: Yes (Other)
  Sender: FDA-Public Use
  Company Number: None

PATIENT
  Age: 61 Year
  Sex: Female

DRUGS (1)
  1. ZOLPIDEM ER 12.5 MG TAB. SUB F [Suspect]
     Active Substance: ZOLPIDEM\ZOLPIDEM TARTRATE
     Indication: INSOMNIA
     Dosage: ?          QUANTITY:1 TABLET(S);?
     Route: 048
     Dates: start: 20020102, end: 20180809

REACTIONS (3)
  - Impaired driving ability [None]
  - Drug ineffective [None]
  - Depressed level of consciousness [None]

NARRATIVE: CASE EVENT DATE: 20180801
